FAERS Safety Report 19735588 (Version 1)
Quarter: 2021Q3

REPORT INFORMATION
  Report Type: Spontaneous
  Country: US (occurrence: US)
  Receive Date: 20210823
  Receipt Date: 20210823
  Transmission Date: 20211014
  Serious: No
  Sender: FDA-Public Use
  Company Number: US-PERRIGO-20US014955

PATIENT

DRUGS (1)
  1. NICOTINE POLACRILEX [Suspect]
     Active Substance: NICOTINE
     Indication: NICOTINE DEPENDENCE
     Dosage: 2 MG, UNKNOWN
     Route: 002
     Dates: start: 202010

REACTIONS (2)
  - Nausea [Unknown]
  - Throat irritation [Unknown]

NARRATIVE: CASE EVENT DATE: 202010
